FAERS Safety Report 9201001 (Version 3)
Quarter: 2013Q2

REPORT INFORMATION
  Report Type: Spontaneous
  Country: JP (occurrence: JP)
  Receive Date: 20130401
  Receipt Date: 20130516
  Transmission Date: 20140414
  Serious: Yes (Hospitalization, Other)
  Sender: FDA-Public Use
  Company Number: JP-JNJFOC-20130309749

PATIENT
  Age: 71 Year
  Sex: Male
  Weight: 65 kg

DRUGS (20)
  1. REMICADE [Suspect]
     Indication: COLITIS ULCERATIVE
     Route: 042
     Dates: start: 20101014
  2. REMICADE [Suspect]
     Indication: COLITIS ULCERATIVE
     Route: 042
     Dates: start: 20120328
  3. REMICADE [Suspect]
     Indication: COLITIS ULCERATIVE
     Dosage: TOTAL 19 INFUSIONS
     Route: 042
     Dates: start: 20130417
  4. REMICADE [Suspect]
     Indication: COLITIS ULCERATIVE
     Route: 042
     Dates: start: 20130220
  5. REMICADE [Suspect]
     Indication: COLITIS ULCERATIVE
     Route: 042
     Dates: start: 20100930
  6. REMICADE [Suspect]
     Indication: CROHN^S DISEASE
     Route: 042
     Dates: start: 20120328
  7. REMICADE [Suspect]
     Indication: CROHN^S DISEASE
     Route: 042
     Dates: start: 20101014
  8. REMICADE [Suspect]
     Indication: CROHN^S DISEASE
     Dosage: TOTAL 19 INFUSIONS
     Route: 042
     Dates: start: 20130417
  9. REMICADE [Suspect]
     Indication: CROHN^S DISEASE
     Route: 042
     Dates: start: 20100930
  10. REMICADE [Suspect]
     Indication: CROHN^S DISEASE
     Route: 042
     Dates: start: 20130220
  11. IMURAN [Suspect]
     Indication: COLITIS ULCERATIVE
     Route: 048
     Dates: start: 20120718, end: 20130312
  12. STEROIDS NOS [Concomitant]
     Route: 065
  13. WARFARIN [Concomitant]
     Indication: PULMONARY EMBOLISM
     Route: 048
  14. PENTASA [Concomitant]
     Indication: COLITIS ULCERATIVE
     Route: 048
  15. ADALAT [Concomitant]
     Indication: HYPERTENSION
     Route: 048
  16. ARTIST [Concomitant]
     Indication: HYPERTENSION
     Route: 048
  17. LIPITOR [Concomitant]
     Indication: HYPERLIPIDAEMIA
     Route: 048
  18. STERONEMA [Concomitant]
     Indication: COLITIS ULCERATIVE
     Route: 054
  19. ONBREZ [Concomitant]
     Indication: CHRONIC OBSTRUCTIVE PULMONARY DISEASE
     Route: 025
  20. SPIRIVA [Concomitant]
     Indication: CHRONIC OBSTRUCTIVE PULMONARY DISEASE
     Route: 025

REACTIONS (5)
  - Lung abscess [Recovering/Resolving]
  - Pulmonary embolism [Recovering/Resolving]
  - Sepsis [Recovering/Resolving]
  - Pneumonia [Unknown]
  - Immune system disorder [Unknown]
